FAERS Safety Report 11417016 (Version 1)
Quarter: 2015Q3

REPORT INFORMATION
  Report Type: Report from Study
  Country: US (occurrence: US)
  Receive Date: 20150825
  Receipt Date: 20150825
  Transmission Date: 20151125
  Serious: Yes (Hospitalization, Other)
  Sender: FDA-Public Use
  Company Number: US-TEVA-562177USA

PATIENT
  Age: 33 Year
  Sex: Female

DRUGS (9)
  1. VENLAFAXINE [Concomitant]
     Active Substance: VENLAFAXINE HYDROCHLORIDE
  2. NEURONTIN [Concomitant]
     Active Substance: GABAPENTIN
  3. COPAXONE [Suspect]
     Active Substance: GLATIRAMER ACETATE
     Indication: MULTIPLE SCLEROSIS
     Route: 065
     Dates: start: 201503
  4. FENTANYL. [Concomitant]
     Active Substance: FENTANYL
  5. LAMICTAL [Concomitant]
     Active Substance: LAMOTRIGINE
  6. SEROQUEL [Concomitant]
     Active Substance: QUETIAPINE FUMARATE
     Dosage: AT BEDTIME
  7. SEROQUEL [Concomitant]
     Active Substance: QUETIAPINE FUMARATE
     Dosage: IN AM
  8. VALIUM [Concomitant]
     Active Substance: DIAZEPAM
  9. DILAUDID [Concomitant]
     Active Substance: HYDROMORPHONE HYDROCHLORIDE
     Dosage: 2-4 MG EVERY 4 HOURS AS NEEDED

REACTIONS (3)
  - Urinary tract infection [Recovered/Resolved]
  - Fall [Recovered/Resolved]
  - Head injury [Unknown]

NARRATIVE: CASE EVENT DATE: 201504
